FAERS Safety Report 25908042 (Version 1)
Quarter: 2025Q4

REPORT INFORMATION
  Report Type: Spontaneous
  Country: US (occurrence: US)
  Receive Date: 20251010
  Receipt Date: 20251010
  Transmission Date: 20260118
  Serious: Yes (Hospitalization, Other)
  Sender: UCB
  Company Number: US-UCBSA-2025063156

PATIENT
  Age: 41 Year
  Sex: Female

DRUGS (5)
  1. LEVETIRACETAM [Suspect]
     Active Substance: LEVETIRACETAM
     Indication: Neuropsychiatric lupus
     Dosage: 1500 MILLIGRAM, 2X/DAY (BID)
     Route: 042
     Dates: start: 2022, end: 2022
  2. LEVETIRACETAM [Suspect]
     Active Substance: LEVETIRACETAM
     Indication: Off label use
  3. LACOSAMIDE [Concomitant]
     Active Substance: LACOSAMIDE
     Indication: Neuropsychiatric lupus
     Dosage: 150 MILLIGRAM, 2X/DAY (BID)
  4. VALPROIC ACID [Concomitant]
     Active Substance: VALPROIC ACID
     Indication: Neuropsychiatric lupus
     Dosage: 500 MILLIGRAM, 2X/DAY (BID)
     Route: 042
  5. PREDNISOLONE [Concomitant]
     Active Substance: PREDNISOLONE
     Indication: Systemic lupus erythematosus
     Dosage: 60 MILLIGRAM, DAILY
     Route: 048

REACTIONS (7)
  - Psychotic disorder [Recovering/Resolving]
  - Hallucination, visual [Recovering/Resolving]
  - Hallucination, auditory [Recovering/Resolving]
  - Drug ineffective for unapproved indication [Unknown]
  - Thinking abnormal [Recovering/Resolving]
  - Persecutory delusion [Recovering/Resolving]
  - Off label use [Unknown]

NARRATIVE: CASE EVENT DATE: 20220101
